FAERS Safety Report 9445571 (Version 2)
Quarter: 2013Q4

REPORT INFORMATION
  Report Type: Spontaneous
  Country: IT (occurrence: IT)
  Receive Date: 20130807
  Receipt Date: 20131007
  Transmission Date: 20140711
  Serious: Yes (Hospitalization)
  Sender: FDA-Public Use
  Company Number: IT-ACTAVIS-2013-14002

PATIENT
  Age: 74 Year
  Sex: Male

DRUGS (8)
  1. CLOPIDOGREL (UNKNOWN) [Suspect]
     Indication: DEEP VEIN THROMBOSIS
     Dosage: 75 MG, DAILY
     Route: 048
     Dates: start: 20111001, end: 20130605
  2. NADROPARIN [Suspect]
     Indication: DEEP VEIN THROMBOSIS
     Dosage: UNK, UNKNOWN
     Route: 058
     Dates: start: 20111001, end: 20130605
  3. ONCO-CARBIDE [Concomitant]
     Indication: PRODUCT USED FOR UNKNOWN INDICATION
     Dosage: UNK, UNKNOWN
     Route: 065
  4. TORVAST [Concomitant]
     Indication: PRODUCT USED FOR UNKNOWN INDICATION
     Dosage: UNK, UNKNOWN
     Route: 065
  5. NORVASC [Concomitant]
     Indication: PRODUCT USED FOR UNKNOWN INDICATION
     Dosage: UNK, UNKNOWN
     Route: 065
  6. FERRO-GRAD [Concomitant]
     Indication: PRODUCT USED FOR UNKNOWN INDICATION
     Dosage: UNK, UNKNOWN
     Route: 065
  7. METFORMIN [Concomitant]
     Indication: PRODUCT USED FOR UNKNOWN INDICATION
     Dosage: UNK, UNKNOWN
     Route: 065
  8. OMEPRAZOLE [Concomitant]
     Indication: PRODUCT USED FOR UNKNOWN INDICATION
     Dosage: UNK, UNKNOWN
     Route: 065

REACTIONS (2)
  - Melaena [Recovered/Resolved]
  - Haematemesis [Recovered/Resolved]
